FAERS Safety Report 8608148-2 (Version None)
Quarter: 2012Q3

REPORT INFORMATION
  Report Type: 
  Country: None (occurrence: None)
  Receive Date: 20120821
  Receipt Date: 20120808
  Transmission Date: 20120928
  Serious: Yes (Disabling)
  Sender: FDA-Public Use
  Company Number: CA-NAPPMUNDI-CAN-2012-0002949

PATIENT
  Sex: Female
  Weight: 90.703 kg

DRUGS (8)
  1. OXYCODONE HCL [Suspect]
     Indication: BACK PAIN
     Dosage: 1 TABLET, BID
     Route: 065
     Dates: start: 20120426
  2. OXYCODONE HCL [Suspect]
     Dosage: 20 MG, HS
     Route: 048
  3. ACETAMINOPHEN [Concomitant]
     Indication: HEADACHE
     Dosage: 1000 MG, DAILY
  4. OXYCODONE HCL [Suspect]
     Indication: PAIN IN EXTREMITY
  5. IBUPROFEN [Concomitant]
     Indication: INFLAMMATION
     Dosage: 200 MG, PRN
  6. DICETEL [Concomitant]
     Indication: COLITIS
     Dosage: UNK, PRN
  7. SULFASALAZINE [Concomitant]
     Indication: COLITIS
     Dosage: UNK, PRN
  8. OXYCODONE HCL [Suspect]
     Indication: BREAKTHROUGH PAIN
     Dosage: 30 MG, BID
     Route: 065

REACTIONS (7)
  - NAUSEA [None]
  - ABDOMINAL DISCOMFORT [None]
  - MOOD SWINGS [None]
  - MALAISE [None]
  - EMOTIONAL DISTRESS [None]
  - HEADACHE [None]
  - HOMICIDAL IDEATION [None]
